FAERS Safety Report 7731943-9 (Version None)
Quarter: 2011Q3

REPORT INFORMATION
  Report Type: 
  Country: None (occurrence: None)
  Receive Date: 20110906
  Receipt Date: 20110714
  Transmission Date: 20111222
  Serious: No
  Sender: FDA-Public Use
  Company Number: US-AMGEN-USASP2011027817

PATIENT
  Age: 88 Year
  Sex: Female
  Weight: 50.34 kg

DRUGS (1)
  1. PROLIA [Suspect]
     Indication: OSTEOPOROSIS POSTMENOPAUSAL
     Dosage: 60 MG, Q6MO
     Route: 058
     Dates: start: 20110414, end: 20110414

REACTIONS (2)
  - HYPERCALCAEMIA [None]
  - OEDEMA PERIPHERAL [None]
